FAERS Safety Report 14276579 (Version 3)
Quarter: 2017Q4

REPORT INFORMATION
  Report Type: Report from Study
  Country: None (occurrence: CA)
  Receive Date: 20171212
  Receipt Date: 20171215
  Transmission Date: 20180321
  Serious: Yes (Other)
  Sender: FDA-Public Use
  Company Number: CA-ABBVIE-17K-028-2188670-00

PATIENT
  Sex: Female

DRUGS (2)
  1. HUMIRA [Suspect]
     Active Substance: ADALIMUMAB
     Indication: CROHN^S DISEASE
     Route: 058
     Dates: start: 20170427, end: 20171208
  2. HUMIRA [Suspect]
     Active Substance: ADALIMUMAB
     Route: 058
     Dates: start: 20171209

REACTIONS (4)
  - Device breakage [Unknown]
  - Device dislocation [Unknown]
  - Medical device site pain [Not Recovered/Not Resolved]
  - Rectal tube insertion [Unknown]

NARRATIVE: CASE EVENT DATE: 2017
